FAERS Safety Report 6515750-0 (Version None)
Quarter: 2009Q4

REPORT INFORMATION
  Report Type: 
  Country: None (occurrence: None)
  Receive Date: 20091223
  Receipt Date: 20091216
  Transmission Date: 20100525
  Serious: Yes (Life-Threatening, Disabling)
  Sender: FDA-Public Use
  Company Number: JP-ABBOTT-09P-087-0612461-00

PATIENT
  Sex: Male
  Weight: 65 kg

DRUGS (9)
  1. SEVOFLURANE [Suspect]
     Indication: INDUCTION AND MAINTENANCE OF ANAESTHESIA
     Dosage: 5 %/ 1.0 - 1.5 %
     Route: 055
     Dates: start: 20090512, end: 20090512
  2. FENTANYL-100 [Concomitant]
     Indication: ANALGESIC THERAPY
     Route: 042
     Dates: start: 20090512, end: 20090512
  3. ROCURONIUM BROMIDE [Concomitant]
     Indication: MUSCLE RELAXANT THERAPY
     Route: 042
     Dates: start: 20090512, end: 20090512
  4. PROPOFOL [Concomitant]
     Indication: INDUCTION OF ANAESTHESIA
     Route: 042
     Dates: start: 20090512, end: 20090512
  5. FLURBIPROFEN [Concomitant]
     Indication: ANALGESIC THERAPY
     Route: 042
     Dates: start: 20090512, end: 20090512
  6. XYLOCAINE W/ EPINEPHRINE [Concomitant]
     Indication: LOCAL ANAESTHESIA
     Dates: start: 20090512, end: 20090512
  7. OXYGEN [Concomitant]
     Indication: INDUCTION OF ANAESTHESIA
  8. OXYGEN [Concomitant]
     Indication: MAINTENANCE OF ANAESTHESIA
  9. HEPARIN [Concomitant]
     Indication: DRUG USE FOR UNKNOWN INDICATION

REACTIONS (3)
  - BLOOD PRESSURE DECREASED [None]
  - ELECTROCARDIOGRAM ST SEGMENT ELEVATION [None]
  - VENTRICULAR TACHYCARDIA [None]
